FAERS Safety Report 9348326 (Version 2)
Quarter: 2014Q3

REPORT INFORMATION
  Report Type: Spontaneous
  Country: US (occurrence: US)
  Receive Date: 20130614
  Receipt Date: 20140819
  Transmission Date: 20150326
  Serious: Yes (Hospitalization, Disabling, Other)
  Sender: FDA-Public Use
  Company Number: US-009507513-1306USA004358

PATIENT
  Sex: Female

DRUGS (1)
  1. NUVARING [Suspect]
     Active Substance: ETHINYL ESTRADIOL\ETONOGESTREL
     Indication: CONTRACEPTION
     Dosage: UNK
     Route: 067
     Dates: start: 2009, end: 20120606

REACTIONS (14)
  - Vertigo [Recovered/Resolved]
  - Obesity [Unknown]
  - Cerebral venous thrombosis [Unknown]
  - Pain [Unknown]
  - Vaginal haemorrhage [Unknown]
  - Lacunar infarction [Unknown]
  - Adjustment disorder with mixed anxiety and depressed mood [Unknown]
  - Nausea [Unknown]
  - Intervertebral disc operation [Unknown]
  - Uterine leiomyoma [Unknown]
  - Migraine [Unknown]
  - Cerebrovascular accident [Unknown]
  - Genital herpes simplex [Unknown]
  - Diverticulum [Unknown]

NARRATIVE: CASE EVENT DATE: 20100831
